FAERS Safety Report 22620704 (Version 2)
Quarter: 2024Q1

REPORT INFORMATION
  Report Type: Spontaneous
  Country: NO (occurrence: NO)
  Receive Date: 20230620
  Receipt Date: 20240118
  Transmission Date: 20240409
  Serious: Yes (Hospitalization, Other)
  Sender: FDA-Public Use
  Company Number: NO-OTSUKA-2023_015822

PATIENT
  Age: 72 Year
  Sex: Female

DRUGS (1)
  1. ABILIFY MAINTENA [Suspect]
     Active Substance: ARIPIPRAZOLE
     Indication: Schizophrenia
     Dosage: 400 MG EVERY 4 WEEKS
     Route: 065

REACTIONS (2)
  - Uterine haemorrhage [Unknown]
  - Inappropriate schedule of product administration [Unknown]
